FAERS Safety Report 7231989-3 (Version None)
Quarter: 2011Q1

REPORT INFORMATION
  Report Type: 
  Country: None (occurrence: None)
  Receive Date: 20110118
  Receipt Date: 20110113
  Transmission Date: 20110831
  Serious: Yes (Death)
  Sender: FDA-Public Use
  Company Number: US-ASTRAZENECA-2011SE02278

PATIENT
  Age: 80 Year
  Sex: Male

DRUGS (4)
  1. SEROQUEL [Suspect]
     Indication: DEMENTIA ALZHEIMER'S TYPE
     Route: 048
     Dates: start: 20101202
  2. ABILIFY [Concomitant]
  3. SEROQUEL [Suspect]
     Indication: DEMENTIA
     Route: 048
     Dates: start: 20101202
  4. ZYPREXA [Concomitant]

REACTIONS (1)
  - PNEUMONIA ASPIRATION [None]
